FAERS Safety Report 5195084-X (Version None)
Quarter: 2006Q4

REPORT INFORMATION
  Report Type: 
  Country: None (occurrence: None)
  Receive Date: 20061229
  Receipt Date: 20061103
  Transmission Date: 20070319
  Serious: Yes (Death, Hospitalization, Other)
  Sender: FDA-Public Use
  Company Number: RU-SHR-RU-2006-033656

PATIENT
  Age: 35 Year
  Sex: Female
  Weight: 55 kg

DRUGS (1)
  1. BETAFERON [Suspect]
     Dosage: 1 INJECTION
     Route: 058
     Dates: start: 20051031, end: 20051107

REACTIONS (4)
  - DECUBITUS ULCER [None]
  - DISSEMINATED INTRAVASCULAR COAGULATION [None]
  - HAEMORRHAGIC ANAEMIA [None]
  - SEPSIS [None]
